FAERS Safety Report 10619609 (Version 8)
Quarter: 2015Q3

REPORT INFORMATION
  Report Type: Report from Study
  Country: US (occurrence: US)
  Receive Date: 20141202
  Receipt Date: 20150723
  Transmission Date: 20151125
  Serious: Yes (Hospitalization)
  Sender: FDA-Public Use
  Company Number: US-SA-2014SA034015

PATIENT
  Age: 53 Year
  Sex: Female

DRUGS (3)
  1. AUBAGIO [Suspect]
     Active Substance: TERIFLUNOMIDE
     Indication: MULTIPLE SCLEROSIS
     Route: 048
     Dates: end: 20150123
  2. AUBAGIO [Suspect]
     Active Substance: TERIFLUNOMIDE
     Indication: MULTIPLE SCLEROSIS
     Route: 048
     Dates: start: 20140312
  3. AUBAGIO [Suspect]
     Active Substance: TERIFLUNOMIDE
     Indication: MULTIPLE SCLEROSIS
     Route: 048
     Dates: start: 2015

REACTIONS (30)
  - Trichorrhexis [Unknown]
  - Cognitive disorder [Unknown]
  - Weight decreased [Unknown]
  - Anxiety [Unknown]
  - Memory impairment [Unknown]
  - Somnolence [Unknown]
  - Impaired driving ability [Unknown]
  - Muscle spasms [Unknown]
  - Depression [Unknown]
  - Constipation [Unknown]
  - Ear pain [Unknown]
  - Fatigue [Unknown]
  - Stress [Unknown]
  - Nail discolouration [Recovering/Resolving]
  - Malaise [Unknown]
  - Lacrimation increased [Unknown]
  - Pain [Unknown]
  - Flatulence [Unknown]
  - Drug dose omission [Unknown]
  - Abnormal dreams [Unknown]
  - Sleep disorder [Unknown]
  - Arthralgia [Unknown]
  - Dehydration [Recovered/Resolved]
  - Alopecia [Recovering/Resolving]
  - Osteoarthritis [Unknown]
  - Abdominal distension [Unknown]
  - Musculoskeletal stiffness [Unknown]
  - Headache [Unknown]
  - Unevaluable event [Unknown]
  - Muscle spasms [Not Recovered/Not Resolved]

NARRATIVE: CASE EVENT DATE: 2014
